FAERS Safety Report 10692593 (Version 2)
Quarter: 2015Q1

REPORT INFORMATION
  Report Type: Report from Study
  Country: JP (occurrence: JP)
  Receive Date: 20150106
  Receipt Date: 20150106
  Transmission Date: 20150720
  Serious: Yes (Hospitalization, Other)
  Sender: FDA-Public Use
  Company Number: JP-GLAXOSMITHKLINE-B0925828A

PATIENT
  Age: 66 Year
  Sex: Male

DRUGS (4)
  1. GASTER [Concomitant]
     Active Substance: FAMOTIDINE
     Indication: ULCER
     Route: 048
  2. NEXIUM [Concomitant]
     Active Substance: ESOMEPRAZOLE MAGNESIUM
     Indication: ULCER
     Route: 048
  3. PAZOPANIB [Suspect]
     Active Substance: PAZOPANIB
     Route: 048
     Dates: start: 20130814, end: 20130918
  4. PAZOPANIB [Suspect]
     Active Substance: PAZOPANIB
     Indication: ROUND CELL LIPOSARCOMA
     Route: 048
     Dates: start: 20130411, end: 20130731

REACTIONS (3)
  - Proteinuria [Recovered/Resolved]
  - Large intestine perforation [Recovering/Resolving]
  - Hypertension [Recovered/Resolved]

NARRATIVE: CASE EVENT DATE: 20130416
